FAERS Safety Report 16880775 (Version 2)
Quarter: 2020Q2

REPORT INFORMATION
  Report Type: Spontaneous
  Country: US (occurrence: US)
  Receive Date: 20191003
  Receipt Date: 20200406
  Transmission Date: 20200713
  Serious: Yes (Other)
  Sender: FDA-Public Use
  Company Number: US-PFIZER INC-2019421471

PATIENT
  Sex: Male

DRUGS (1)
  1. VIAGRA [Suspect]
     Active Substance: SILDENAFIL CITRATE
     Dosage: 50 MG, UNK

REACTIONS (7)
  - Nasopharyngitis [Unknown]
  - Rib fracture [Unknown]
  - Road traffic accident [Unknown]
  - Drug ineffective [Unknown]
  - Cough [Unknown]
  - Malaise [Unknown]
  - Dysphonia [Unknown]
